FAERS Safety Report 13780835 (Version 1)
Quarter: 2017Q3

REPORT INFORMATION
  Report Type: Spontaneous
  Country: US (occurrence: US)
  Receive Date: 20170721
  Receipt Date: 20170721
  Transmission Date: 20171127
  Serious: Yes (Life-Threatening, Disabling)
  Sender: FDA-Public Use
  Company Number: None

PATIENT
  Age: 56 Year
  Sex: Female
  Weight: 54 kg

DRUGS (7)
  1. LEVOFLOXACIN 750MG TABLETS MFG Z [Suspect]
     Active Substance: LEVOFLOXACIN
     Indication: PNEUMONIA
     Dosage: ?          OTHER STRENGTH:QTY 5;QUANTITY:1 TABLET(S);?
     Route: 048
     Dates: start: 20170505, end: 20170509
  2. ASPIRIN. [Concomitant]
     Active Substance: ASPIRIN
  3. BANOPHEN [Concomitant]
     Active Substance: DIPHENHYDRAMINE HYDROCHLORIDE
  4. METOPROLOL TARTRATE. [Concomitant]
     Active Substance: METOPROLOL TARTRATE
  5. BENZONATATE. [Concomitant]
     Active Substance: BENZONATATE
  6. ATORVASTATIN [Concomitant]
     Active Substance: ATORVASTATIN
  7. LORATADINE. [Concomitant]
     Active Substance: LORATADINE

REACTIONS (2)
  - Impaired self-care [None]
  - Rheumatic disorder [None]

NARRATIVE: CASE EVENT DATE: 20170508
